FAERS Safety Report 6141230-0 (Version None)
Quarter: 2009Q2

REPORT INFORMATION
  Report Type: 
  Country: None (occurrence: None)
  Receive Date: 20090402
  Receipt Date: 20090327
  Transmission Date: 20091009
  Serious: Yes (Other)
  Sender: FDA-Public Use
  Company Number: PHHO2009GB04150

PATIENT

DRUGS (2)
  1. RAD 666 RAD+TAB+PTR [Suspect]
     Indication: TRANSPLANT
     Dosage: UNK
     Route: 048
  2. MYFORTIC [Suspect]
     Indication: TRANSPLANT

REACTIONS (2)
  - CARDIAC DISORDER [None]
  - FLUID OVERLOAD [None]
